FAERS Safety Report 16316790 (Version 1)
Quarter: 2019Q2

REPORT INFORMATION
  Report Type: Spontaneous
  Country: IE (occurrence: IE)
  Receive Date: 20190515
  Receipt Date: 20190515
  Transmission Date: 20190711
  Serious: Yes (Other)
  Sender: FDA-Public Use
  Company Number: IE-AMGEN-IRLSP2019076827

PATIENT
  Age: 55 Year
  Sex: Female

DRUGS (4)
  1. XOLAIR [Suspect]
     Active Substance: OMALIZUMAB
     Indication: ASTHMA
     Dosage: 600 MILLIGRAM
     Route: 058
  2. PROCORALAN [Suspect]
     Active Substance: IVABRADINE
     Indication: ATRIAL FIBRILLATION
  3. PROCORALAN [Suspect]
     Active Substance: IVABRADINE
     Indication: TACHYCARDIA
  4. PROCORALAN [Suspect]
     Active Substance: IVABRADINE
     Indication: PALPITATIONS
     Dosage: 2.5 MILLIGRAM, BID
     Route: 048

REACTIONS (10)
  - Palpitations [Not Recovered/Not Resolved]
  - Pain [Unknown]
  - Photophobia [Recovered/Resolved]
  - Migraine [Unknown]
  - Pain in extremity [Unknown]
  - Diplopia [Recovered/Resolved]
  - Off label use [Unknown]
  - Tachycardia [Unknown]
  - Vision blurred [Recovered/Resolved]
  - Paraesthesia [Unknown]

NARRATIVE: CASE EVENT DATE: 2019
